FAERS Safety Report 6939415-6 (Version None)
Quarter: 2010Q3

REPORT INFORMATION
  Report Type: 
  Country: None (occurrence: None)
  Receive Date: 20100819
  Receipt Date: 20100809
  Transmission Date: 20110219
  Serious: Yes (Hospitalization)
  Sender: FDA-Public Use
  Company Number: TCI2010A03057

PATIENT
  Age: 88 Year
  Sex: Male

DRUGS (8)
  1. LANSOPRAZOLE [Suspect]
     Indication: REFLUX OESOPHAGITIS
     Dosage: 15 MG (15 MG,1 IN 1 D) PER ORAL ; 30 MG (30 MG,1 IN 1 D) PER ORAL
     Route: 048
     Dates: start: 20091225, end: 20100527
  2. LANSOPRAZOLE [Suspect]
     Indication: REFLUX OESOPHAGITIS
     Dosage: 15 MG (15 MG,1 IN 1 D) PER ORAL ; 30 MG (30 MG,1 IN 1 D) PER ORAL
     Route: 048
     Dates: start: 20100528, end: 20100629
  3. GASMOTIN (MOSAPRIDE CITRATE) [Concomitant]
  4. NORVASC [Concomitant]
  5. BERIZYM (ENZYMES NOS) [Concomitant]
  6. FOIPAN (CAMOSTAT MESILATE) [Concomitant]
  7. PURSENNID (SENNA ALEXANDRINA LEAF) [Concomitant]
  8. MAGNESIUM OXIDE [Concomitant]

REACTIONS (4)
  - COLITIS COLLAGENOUS [None]
  - CONSTIPATION [None]
  - HYPOPROTEINAEMIA [None]
  - OEDEMA PERIPHERAL [None]
